FAERS Safety Report 10061257 (Version 1)
Quarter: 2014Q2

REPORT INFORMATION
  Report Type: Spontaneous
  Country: US (occurrence: US)
  Receive Date: 20140407
  Receipt Date: 20140407
  Transmission Date: 20141212
  Serious: No
  Sender: FDA-Public Use
  Company Number: US-TEVA-414759USA

PATIENT
  Sex: Female

DRUGS (1)
  1. CEFADROXIL [Suspect]
     Dates: start: 20130523, end: 20130525

REACTIONS (3)
  - Blister [Not Recovered/Not Resolved]
  - Hypersensitivity [Unknown]
  - Rash [Unknown]
